FAERS Safety Report 7456134-0 (Version None)
Quarter: 2011Q2

REPORT INFORMATION
  Report Type: 
  Country: None (occurrence: None)
  Receive Date: 20110503
  Receipt Date: 20110428
  Transmission Date: 20111010
  Serious: Yes (Death, Hospitalization, Other)
  Sender: FDA-Public Use
  Company Number: PHEH2006US01239

PATIENT
  Sex: Female
  Weight: 70 kg

DRUGS (45)
  1. PREVACID [Concomitant]
     Dosage: 30 MG, QD
  2. TORSEMIDE [Concomitant]
  3. ZOFRAN [Concomitant]
  4. COUMADIN [Concomitant]
  5. IRON [Concomitant]
  6. ATACAND [Concomitant]
     Dosage: 160 MG, QD
  7. AROMASIN [Concomitant]
     Dosage: UNK
     Dates: start: 20011201, end: 20020901
  8. MEPROBAMATE [Concomitant]
  9. PRILOSEC [Concomitant]
  10. ROXANOL [Concomitant]
     Indication: PAIN
     Dosage: 20MG/ML, 5-10 MG Q 2 H PRN
  11. PROTONIX [Concomitant]
  12. STOOL SOFTENER [Concomitant]
  13. TAXOL [Concomitant]
  14. ZOMETA [Suspect]
     Indication: METASTASES TO BONE
     Dosage: 4 MG, EVERY 21 DAYS
     Route: 042
     Dates: start: 20030701, end: 20041201
  15. ALLEGRA [Concomitant]
  16. NAVELBINE [Concomitant]
  17. XELODA [Concomitant]
     Indication: BREAST CANCER
     Dosage: 1000 MG, BID
     Dates: start: 20040901, end: 20050928
  18. FASLODEX [Concomitant]
     Dosage: UNK
     Dates: start: 20020901
  19. DECADRON [Concomitant]
  20. PROCRIT [Concomitant]
  21. ST MARY'S THISTLE [Concomitant]
  22. AREDIA [Suspect]
     Indication: METASTASES TO BONE
     Dosage: 90 MG, QMO
     Route: 042
     Dates: start: 19980101, end: 19990201
  23. AREDIA [Suspect]
     Dosage: 90 MG, BIW
     Dates: start: 19990201, end: 20030701
  24. ZOMETA [Suspect]
     Dosage: 4 MG EVERY 21 DAYS
     Route: 042
     Dates: start: 20050501, end: 20050627
  25. TAMOXIFEN CITRATE [Concomitant]
     Dosage: UNK
     Dates: start: 20050928
  26. MEGACE [Concomitant]
     Dosage: 80 MG, QD
  27. ARIMIDEX [Concomitant]
     Dosage: UNK
     Dates: start: 20000101
  28. TAXOTERE [Concomitant]
     Indication: BREAST CANCER
     Dosage: UNK
     Dates: start: 20030201, end: 20030701
  29. CALCIUM [Concomitant]
     Dosage: 1200 MG, QD
  30. FLONASE [Concomitant]
  31. K-TAB [Concomitant]
  32. TAMOXIFEN CITRATE [Concomitant]
     Indication: BREAST CANCER
     Dosage: UNK
     Dates: start: 19970101, end: 20000101
  33. MEGACE [Concomitant]
     Indication: BREAST CANCER
     Dosage: 40 MG, QD
     Dates: start: 20030101
  34. SKELAXIN [Concomitant]
  35. MILK OF MAGNESIA TAB [Concomitant]
  36. PACLITAXEL [Concomitant]
     Dosage: 100MG/M2
  37. VINORELBINE [Concomitant]
     Dosage: 30MG/M2
  38. FOLIC ACID [Concomitant]
  39. ZITHROMAX [Concomitant]
  40. GEMCITABINE [Concomitant]
  41. NEXIUM [Concomitant]
  42. FOSAMAX [Concomitant]
  43. LOMOTIL [Concomitant]
  44. EMLA [Concomitant]
  45. POTASSIUM [Concomitant]

REACTIONS (77)
  - NEOPLASM MALIGNANT [None]
  - BACTERIAL INFECTION [None]
  - BONE DISORDER [None]
  - PALPITATIONS [None]
  - TACHYARRHYTHMIA [None]
  - VIRAL LABYRINTHITIS [None]
  - HEPATIC LESION [None]
  - HEPATOMEGALY [None]
  - STOMATITIS [None]
  - LYMPHOEDEMA [None]
  - BRONCHITIS [None]
  - TRANSFERRIN DECREASED [None]
  - EXOSTOSIS [None]
  - METASTASES TO LIVER [None]
  - PNEUMONIA [None]
  - SYNCOPE [None]
  - VOMITING [None]
  - CONSTIPATION [None]
  - DIVERTICULUM INTESTINAL [None]
  - HAEMORRHOIDS [None]
  - SERUM FERRITIN INCREASED [None]
  - NECK PAIN [None]
  - VULVAL ABSCESS [None]
  - OSTEONECROSIS OF JAW [None]
  - BONE FRAGMENTATION [None]
  - MYALGIA [None]
  - MUSCULOSKELETAL CHEST PAIN [None]
  - METASTASES TO ADRENALS [None]
  - LUNG NEOPLASM [None]
  - PALMAR-PLANTAR ERYTHRODYSAESTHESIA SYNDROME [None]
  - RALES [None]
  - HYPERSENSITIVITY [None]
  - TENDONITIS [None]
  - NAIL DISORDER [None]
  - METASTASES TO BONE MARROW [None]
  - BONE SWELLING [None]
  - TOOTH DISORDER [None]
  - IMPAIRED HEALING [None]
  - NEUROPATHY PERIPHERAL [None]
  - RECTAL HAEMORRHAGE [None]
  - LARGE INTESTINAL ULCER [None]
  - RENAL MASS [None]
  - GINGIVITIS [None]
  - DYSPNOEA [None]
  - ALOPECIA [None]
  - WEIGHT INCREASED [None]
  - RED CELL DISTRIBUTION WIDTH INCREASED [None]
  - CLOSTRIDIAL INFECTION [None]
  - BIOPSY BONE ABNORMAL [None]
  - FLUID RETENTION [None]
  - DEAFNESS [None]
  - BLOOD TRIGLYCERIDES INCREASED [None]
  - HIGH DENSITY LIPOPROTEIN DECREASED [None]
  - CHOLELITHIASIS [None]
  - COUGH [None]
  - OSTEOARTHRITIS [None]
  - PLATELET COUNT DECREASED [None]
  - GASTROINTESTINAL TOXICITY [None]
  - CREPITATIONS [None]
  - ANAEMIA [None]
  - MONOCYTE COUNT INCREASED [None]
  - BLOOD GLUCOSE INCREASED [None]
  - DIARRHOEA [None]
  - THORACIC OUTLET SYNDROME [None]
  - SPLENOMEGALY [None]
  - ASCITES [None]
  - MASS [None]
  - LIVER FUNCTION TEST ABNORMAL [None]
  - PANCYTOPENIA [None]
  - OSTEOPENIA [None]
  - METASTASES TO BONE [None]
  - BURSITIS [None]
  - RADICULAR PAIN [None]
  - ARTHRALGIA [None]
  - OEDEMA [None]
  - OSTEOLYSIS [None]
  - COLITIS ULCERATIVE [None]
